FAERS Safety Report 18900964 (Version 1)
Quarter: 2021Q1

REPORT INFORMATION
  Report Type: Report from Study
  Country: CA (occurrence: CA)
  Receive Date: 20210217
  Receipt Date: 20210217
  Transmission Date: 20210420
  Serious: Yes (Other)
  Sender: FDA-Public Use
  Company Number: CA-BEH-2021128333

PATIENT

DRUGS (1)
  1. HUMAN IMMUNOGLOBULIN (GENERIC) [Suspect]
     Active Substance: HUMAN IMMUNOGLOBULIN G
     Indication: VIRAL MYOCARDITIS
     Route: 042

REACTIONS (4)
  - Headache [Unknown]
  - No adverse event [Unknown]
  - Meningitis aseptic [Unknown]
  - Off label use [Unknown]
